FAERS Safety Report 10579380 (Version 7)
Quarter: 2016Q2

REPORT INFORMATION
  Report Type: Spontaneous
  Country: CN (occurrence: CN)
  Receive Date: 20141112
  Receipt Date: 20160608
  Transmission Date: 20160815
  Serious: Yes (Hospitalization, Other)
  Sender: FDA-Public Use
  Company Number: CN-009507513-1411CHN005131

PATIENT
  Age: 61 Year
  Sex: Male
  Weight: 57.6 kg

DRUGS (14)
  1. AMBROXOL HYDROCHLORIDE [Concomitant]
     Active Substance: AMBROXOL HYDROCHLORIDE
     Indication: COUGH
     Dosage: 10 ML TWICE DAILY
     Route: 048
     Dates: start: 20141030
  2. EMEND [Suspect]
     Active Substance: APREPITANT
     Dosage: 80 MG, ONCE
     Route: 048
     Dates: start: 20141104, end: 20141104
  3. DOCETAXEL. [Concomitant]
     Active Substance: DOCETAXEL
     Indication: CHEMOTHERAPY
     Dosage: 120 MG DAILY; 1 CYCLE
     Route: 042
     Dates: start: 20141103, end: 20141103
  4. FRUCTOSE [Concomitant]
     Active Substance: FRUCTOSE
     Dosage: 250 ML, QD; AS INJECTION OF DILUENT
     Route: 042
     Dates: start: 20141103, end: 20141103
  5. CODEINE PHOSPHATE (+) PLATYCODON [Concomitant]
     Indication: COUGH
     Dosage: 60 MG TWICE DAILY,
     Route: 048
     Dates: start: 20141030
  6. DEXAMETHASONE. [Concomitant]
     Active Substance: DEXAMETHASONE
     Indication: PROPHYLAXIS OF NAUSEA AND VOMITING
     Dosage: 10 MG, QD
     Route: 041
     Dates: start: 20141103, end: 20141105
  7. PALONOSETRON HYDROCHLORIDE. [Concomitant]
     Active Substance: PALONOSETRON HYDROCHLORIDE
     Indication: PROPHYLAXIS OF NAUSEA AND VOMITING
     Dosage: 0.5 MG, QD
     Route: 041
     Dates: start: 20141103, end: 20141105
  8. EMEND [Suspect]
     Active Substance: APREPITANT
     Indication: PROPHYLAXIS OF NAUSEA AND VOMITING
     Dosage: 125 MG, ONCE
     Route: 048
     Dates: start: 20141103, end: 20141103
  9. CISPLATIN. [Concomitant]
     Active Substance: CISPLATIN
     Indication: CHEMOTHERAPY
     Dosage: 40 MG, D1-D3
     Route: 042
     Dates: start: 20141103, end: 20141105
  10. LENTINAN [Concomitant]
     Active Substance: LENTINAN
     Indication: NEOPLASM
  11. THYMOPENTIN [Concomitant]
     Active Substance: THYMOPENTIN
     Indication: PROPHYLAXIS
     Dosage: 20 MG, QD
     Route: 058
     Dates: start: 20141103, end: 20141105
  12. AMIFOSTINE. [Concomitant]
     Active Substance: AMIFOSTINE
     Indication: CHEMOTHERAPY
     Dosage: 0.5 G, QD
     Route: 042
     Dates: start: 20141103, end: 20141105
  13. EMEND [Suspect]
     Active Substance: APREPITANT
     Dosage: 80 MG, ONCE
     Route: 048
     Dates: start: 20141105, end: 20141105
  14. LENTINAN [Concomitant]
     Active Substance: LENTINAN
     Indication: PROPHYLAXIS
     Dosage: 2 MG, QD
     Route: 042
     Dates: start: 20141103, end: 20141103

REACTIONS (2)
  - Infection [Not Recovered/Not Resolved]
  - Bone marrow failure [Not Recovered/Not Resolved]

NARRATIVE: CASE EVENT DATE: 20141106
